FAERS Safety Report 5406088-3 (Version None)
Quarter: 2007Q3

REPORT INFORMATION
  Report Type: 
  Country: None (occurrence: None)
  Receive Date: 20070802
  Receipt Date: 20070802
  Transmission Date: 20080115
  Serious: Yes (Other)
  Sender: FDA-Public Use
  Company Number: None

PATIENT
  Age: 25 Year
  Sex: Female

DRUGS (1)
  1. MEPERIDINE HCL [Suspect]
     Indication: PAIN
     Dosage: 50MG IVP X1
     Route: 042
     Dates: start: 20070712

REACTIONS (4)
  - PAIN [None]
  - PRURITUS [None]
  - RASH [None]
  - URTICARIA [None]
